FAERS Safety Report 7133003-7 (Version None)
Quarter: 2010Q4

REPORT INFORMATION
  Report Type: 
  Country: None (occurrence: None)
  Receive Date: 20101202
  Receipt Date: 20101123
  Transmission Date: 20110411
  Serious: Yes (Hospitalization, Disabling)
  Sender: FDA-Public Use
  Company Number: A0731197A

PATIENT
  Age: 76 Year
  Sex: Male
  Weight: 118.6 kg

DRUGS (13)
  1. AVANDIA [Suspect]
     Dosage: 4MG TWICE PER DAY
     Route: 048
     Dates: start: 20040101, end: 20080501
  2. AVANDAMET [Suspect]
     Indication: DIABETES MELLITUS
     Route: 048
     Dates: start: 20080501
  3. GLUCOPHAGE [Concomitant]
     Dates: start: 20040101
  4. METFORMIN [Concomitant]
     Dates: start: 20040101
  5. LANTUS [Concomitant]
     Dates: start: 20000101
  6. AMARYL [Concomitant]
     Dates: start: 20030101, end: 20060101
  7. ZANTAC [Concomitant]
  8. XANAX [Concomitant]
  9. VICODIN [Concomitant]
  10. FLOMAX [Concomitant]
  11. ELAVIL [Concomitant]
  12. HYDROCHLOROTHIAZIDE [Concomitant]
  13. LIPITOR [Concomitant]

REACTIONS (4)
  - CEREBRAL ISCHAEMIA [None]
  - CEREBROVASCULAR ACCIDENT [None]
  - MOVEMENT DISORDER [None]
  - PAIN [None]
